FAERS Safety Report 4495775-X (Version None)
Quarter: 2004Q4

REPORT INFORMATION
  Report Type: 
  Country: None (occurrence: None)
  Receive Date: 20041104
  Receipt Date: 20041019
  Transmission Date: 20050328
  Serious: Yes (Hospitalization)
  Sender: FDA-Public Use
  Company Number: SU-2004-002768

PATIENT
  Age: 61 Year
  Sex: Female
  Weight: 57.6068 kg

DRUGS (6)
  1. BENICAR HCT [Suspect]
     Indication: HYPERTENSION
     Dosage: 40.125 MG QD PO
     Route: 048
     Dates: start: 20040917, end: 20041017
  2. MORPHINE [Concomitant]
  3. NORCO [Concomitant]
  4. CRESTOR [Concomitant]
  5. ATIVAN [Concomitant]
  6. PROZAC [Concomitant]

REACTIONS (16)
  - ANOREXIA [None]
  - ASTHENIA [None]
  - BLOOD POTASSIUM DECREASED [None]
  - CONTUSION [None]
  - DEHYDRATION [None]
  - DIARRHOEA [None]
  - FALL [None]
  - GAIT DISTURBANCE [None]
  - HAEMATOCRIT DECREASED [None]
  - HAEMOGLOBIN DECREASED [None]
  - HYPOTENSION [None]
  - HYPOXIA [None]
  - MARKEDLY REDUCED DIETARY INTAKE [None]
  - NAUSEA [None]
  - RENAL FAILURE ACUTE [None]
  - WEIGHT DECREASED [None]
